FAERS Safety Report 5943764-8 (Version None)
Quarter: 2008Q4

REPORT INFORMATION
  Report Type: 
  Country: None (occurrence: None)
  Receive Date: 20081106
  Receipt Date: 20081029
  Transmission Date: 20090506
  Serious: Yes (Other)
  Sender: FDA-Public Use
  Company Number: NL-PFIZER INC-2008079552

PATIENT
  Weight: 99 kg

DRUGS (3)
  1. GENOTROPIN [Suspect]
     Indication: GROWTH HORMONE DEFICIENCY
     Route: 058
     Dates: start: 20050912, end: 20080912
  2. LEVOTHYROXINE SODIUM [Concomitant]
     Dosage: DAILY DOSE:200MCG
     Dates: start: 20060112
  3. DESMOPRESSIN ACETATE [Concomitant]
     Dates: start: 19900101

REACTIONS (1)
  - PULMONARY SEQUESTRATION [None]
